FAERS Safety Report 5688358-7 (Version None)
Quarter: 2008Q1

REPORT INFORMATION
  Report Type: 
  Country: None (occurrence: None)
  Receive Date: 20080328
  Receipt Date: 20080328
  Transmission Date: 20080703
  Serious: Yes (Hospitalization)
  Sender: FDA-Public Use
  Company Number: None

PATIENT
  Age: 29 Year
  Sex: Female
  Weight: 74.8435 kg

DRUGS (2)
  1. LOVENOX [Suspect]
     Indication: DEEP VEIN THROMBOSIS
     Dosage: 80 2X DAY SQ
     Route: 058
     Dates: start: 20080208, end: 20080212
  2. COUMADIN [Suspect]
     Dosage: 5 MG 1X DAY PO
     Route: 048

REACTIONS (6)
  - COMA [None]
  - ENCEPHALOPATHY [None]
  - LETHARGY [None]
  - MENTAL STATUS CHANGES [None]
  - ORAL INTAKE REDUCED [None]
  - SOMNOLENCE [None]
